FAERS Safety Report 5447817-2 (Version None)
Quarter: 2007Q3

REPORT INFORMATION
  Report Type: 
  Country: None (occurrence: None)
  Receive Date: 20070910
  Receipt Date: 20070904
  Transmission Date: 20080115
  Serious: Yes (Other)
  Sender: FDA-Public Use
  Company Number: US-PFIZER INC-2007073738

PATIENT
  Sex: Female
  Weight: 82 kg

DRUGS (10)
  1. CELEBREX [Suspect]
     Indication: ARTHRITIS
  2. NEURONTIN [Suspect]
     Indication: NEUROPATHY
     Dates: start: 20060101, end: 20070901
  3. PREDNISONE [Suspect]
     Indication: HYPERSENSITIVITY
  4. BENADRYL [Suspect]
     Indication: HYPERSENSITIVITY
  5. GABAPENTIN [Suspect]
     Indication: NEUROPATHY
  6. TOPROL-XL [Concomitant]
  7. DIOVAN HCT [Concomitant]
  8. PREMARIN [Concomitant]
  9. SYNTHROID [Concomitant]
  10. SIMVASTATIN [Concomitant]

REACTIONS (8)
  - BLADDER DISTENSION [None]
  - DRUG WITHDRAWAL SYNDROME [None]
  - HYPERSENSITIVITY [None]
  - HYPERTENSION [None]
  - NEUROPATHY [None]
  - SWOLLEN TONGUE [None]
  - THROAT TIGHTNESS [None]
  - TYPE 2 DIABETES MELLITUS [None]
